FAERS Safety Report 13920801 (Version 1)
Quarter: 2017Q3

REPORT INFORMATION
  Report Type: Spontaneous
  Country: US (occurrence: None)
  Receive Date: 20170830
  Receipt Date: 20170830
  Transmission Date: 20171127
  Serious: Yes (Hospitalization)
  Sender: FDA-Public Use
  Company Number: None

PATIENT
  Age: 30 Year
  Sex: Male

DRUGS (13)
  1. NORDITROPIN [Suspect]
     Active Substance: SOMATROPIN
     Indication: HYPOPITUITARISM
     Route: 058
  2. CIPROFLOXACIN. [Concomitant]
     Active Substance: CIPROFLOXACIN
  3. ANASTROZ [Concomitant]
  4. AMOX [Concomitant]
     Active Substance: UNSPECIFIED INGREDIENT
  5. OXANDROL [Concomitant]
  6. FUROSEMIDE. [Concomitant]
     Active Substance: FUROSEMIDE
  7. CLINDAMYCIN. [Concomitant]
     Active Substance: CLINDAMYCIN
  8. FLUCONAZOLE. [Concomitant]
     Active Substance: FLUCONAZOLE
  9. DEXAMETHASON [Concomitant]
     Active Substance: DEXAMETHASONE
  10. DOXYCYCL [Concomitant]
  11. SMZ/TMP [Concomitant]
     Active Substance: SULFAMETHOXAZOLE\TRIMETHOPRIM
  12. TERBINAFINE. [Concomitant]
     Active Substance: TERBINAFINE
  13. TRIAM/HCTZ [Concomitant]

REACTIONS (2)
  - Infection [None]
  - Umbilical hernia repair [None]

NARRATIVE: CASE EVENT DATE: 201708
